FAERS Safety Report 8548427-0 (Version None)
Quarter: 2012Q3

REPORT INFORMATION
  Report Type: 
  Country: None (occurrence: None)
  Receive Date: 20120730
  Receipt Date: 20120723
  Transmission Date: 20120928
  Serious: Yes (Hospitalization, Other)
  Sender: FDA-Public Use
  Company Number: US-MSD-2012SP017245

PATIENT

DRUGS (5)
  1. REBETOL [Suspect]
     Indication: HEPATITIS C
     Dosage: UNK UNK, UNKNOWN
     Route: 065
     Dates: start: 20120427, end: 20120617
  2. PEG-INTRON [Suspect]
     Indication: HEPATITIS C
     Dosage: UNK UNK, UNKNOWN
     Route: 065
     Dates: start: 20120427, end: 20120617
  3. ANTIVIRAL (UNSPECIFIED) [Suspect]
     Dosage: UNK UNK, UNKNOWN
     Route: 065
     Dates: start: 20120317
  4. INVESTIGATIONAL DRUG (UNSPECIFIED) [Suspect]
     Indication: HEPATITIS C
     Dosage: UNK UNK, UNKNOWN
     Route: 065
     Dates: start: 20120316
  5. TELAPREVIR [Concomitant]
     Indication: HEPATITIS C
     Dosage: UNK
     Dates: start: 20120427, end: 20120617

REACTIONS (5)
  - CHILLS [None]
  - DEPRESSED LEVEL OF CONSCIOUSNESS [None]
  - CLOSTRIDIAL INFECTION [None]
  - HEPATIC FAILURE [None]
  - RENAL FAILURE [None]
